FAERS Safety Report 6709910-3 (Version None)
Quarter: 2010Q2

REPORT INFORMATION
  Report Type: 
  Country: None (occurrence: None)
  Receive Date: 20100504
  Receipt Date: 20100416
  Transmission Date: 20101027
  Serious: Yes (Other)
  Sender: FDA-Public Use
  Company Number: IE-SANOFI-AVENTIS-2010SA022396

PATIENT
  Sex: Male

DRUGS (2)
  1. CLEXANE [Suspect]
  2. WARFARIN SODIUM [Concomitant]

REACTIONS (1)
  - CIRCULATORY COLLAPSE [None]
